FAERS Safety Report 5771670-0 (Version None)
Quarter: 2008Q2

REPORT INFORMATION
  Report Type: 
  Country: None (occurrence: None)
  Receive Date: 20080611
  Receipt Date: 20080526
  Transmission Date: 20081010
  Serious: Yes (Death, Other)
  Sender: FDA-Public Use
  Company Number: 2008US001478

PATIENT
  Age: 68 Year
  Sex: Female
  Weight: 32.1 kg

DRUGS (11)
  1. AMBISOME [Suspect]
     Indication: CEREBRAL ASPERGILLOSIS
     Dosage: 100 MG, UID/QD, IV NOS
     Route: 042
     Dates: start: 20080201, end: 20080211
  2. ITRACONAZOLE [Concomitant]
  3. GASTER OD [Concomitant]
  4. BIOFERMIN (STREPTOCOCCUS FAECALIS, LACTOBACILLUS ACIDOPHILUS, BACILLUS [Concomitant]
  5. SULFAMETHOXAZOLE AND TRIMETHOPRIM [Concomitant]
  6. PURSENNID (SENNOSIDE A+B) [Concomitant]
  7. NATEGLINIDE [Concomitant]
  8. PRODIF [Concomitant]
  9. FULCALIQ1 [Concomitant]
  10. HUMULIN R [Concomitant]
  11. FINIBAX [Concomitant]

REACTIONS (1)
  - CONVULSION [None]
